FAERS Safety Report 17021225 (Version 3)
Quarter: 2020Q1

REPORT INFORMATION
  Report Type: Spontaneous
  Country: US (occurrence: US)
  Receive Date: 20191112
  Receipt Date: 20200117
  Transmission Date: 20200409
  Serious: Yes (Hospitalization, Other)
  Sender: FDA-Public Use
  Company Number: US-PFIZER INC-2019483143

PATIENT
  Age: 82 Year
  Sex: Female

DRUGS (3)
  1. CHANTIX [Suspect]
     Active Substance: VARENICLINE TARTRATE
     Indication: SMOKING CESSATION THERAPY
     Dosage: UNK(1 CHX-1.0, OFF + ON 3 YEARS)
  2. VITAMIN D3 [Concomitant]
     Active Substance: CHOLECALCIFEROL
     Dosage: UNK
  3. LIPITOR [Concomitant]
     Active Substance: ATORVASTATIN CALCIUM
     Dosage: 20 MG, UNK

REACTIONS (5)
  - Cataract [Recovered/Resolved]
  - Chronic obstructive pulmonary disease [Recovering/Resolving]
  - Arthritis [Not Recovered/Not Resolved]
  - Dry skin [Unknown]
  - Dry eye [Unknown]
